FAERS Safety Report 19331005 (Version 1)
Quarter: 2021Q2

REPORT INFORMATION
  Report Type: Spontaneous
  Country: CN (occurrence: CN)
  Receive Date: 20210528
  Receipt Date: 20210528
  Transmission Date: 20210717
  Serious: Yes (Hospitalization)
  Sender: FDA-Public Use
  Company Number: CN-PFIZER INC-2021585495

PATIENT
  Age: 48 Year
  Sex: Male
  Weight: 95 kg

DRUGS (6)
  1. CYTOSAR [Suspect]
     Active Substance: CYTARABINE
     Indication: ACUTE MYELOID LEUKAEMIA
     Dosage: 4.000 G, 2X/DAY
     Route: 041
     Dates: start: 20210417, end: 20210419
  2. METHOTREXATE. [Suspect]
     Active Substance: METHOTREXATE
     Indication: ACUTE MYELOID LEUKAEMIA
     Dosage: 0.1 ML, 1X/DAY
     Route: 037
     Dates: start: 20210419, end: 20210419
  3. SODIUM CHLORIDE. [Concomitant]
     Active Substance: SODIUM CHLORIDE
     Indication: VEHICLE SOLUTION USE
     Dosage: 250.000 ML, 2X/DAY
     Route: 041
     Dates: start: 20210417, end: 20210419
  4. SODIUM CHLORIDE. [Concomitant]
     Active Substance: SODIUM CHLORIDE
     Dosage: 1.9 ML, 1X/DAY
     Route: 037
     Dates: start: 20210419, end: 20210419
  5. CYTOSAR [Suspect]
     Active Substance: CYTARABINE
     Indication: VEHICLE SOLUTION USE
     Dosage: 0.05 G, 1X/DAY
     Route: 037
     Dates: start: 20210419, end: 20210419
  6. SODIUM CHLORIDE. [Concomitant]
     Active Substance: SODIUM CHLORIDE
     Dosage: 1 ML, 1X/DAY
     Route: 037
     Dates: start: 20210419, end: 20210419

REACTIONS (2)
  - Myelosuppression [Recovering/Resolving]
  - Full blood count decreased [Recovering/Resolving]

NARRATIVE: CASE EVENT DATE: 20210423
